FAERS Safety Report 19078482 (Version 2)
Quarter: 2022Q2

REPORT INFORMATION
  Report Type: Report from Study
  Country: US (occurrence: US)
  Receive Date: 20210331
  Receipt Date: 20220425
  Transmission Date: 20220720
  Serious: Yes (Hospitalization, Other)
  Sender: FDA-Public Use
  Company Number: US-SA-2018SA149593

PATIENT
  Age: 49 Year
  Sex: Female

DRUGS (4)
  1. VANDETANIB [Suspect]
     Active Substance: VANDETANIB
     Indication: Thyroid cancer
     Dosage: 100 MG, QD
     Route: 048
     Dates: start: 20160111
  2. COLESTIPOL [Concomitant]
     Active Substance: COLESTIPOL
  3. ASPIRIN [Concomitant]
     Active Substance: ASPIRIN
  4. IMODIUM [Concomitant]
     Active Substance: LOPERAMIDE HYDROCHLORIDE
     Indication: Diarrhoea

REACTIONS (14)
  - Neuropathy peripheral [Unknown]
  - COVID-19 [Unknown]
  - Pneumonia [Unknown]
  - Hypotension [Unknown]
  - Hospitalisation [Unknown]
  - Diarrhoea [Not Recovered/Not Resolved]
  - Renal disorder [Unknown]
  - Dehydration [Unknown]
  - Infection [Unknown]
  - Hypoaesthesia [Unknown]
  - Blood pressure increased [Unknown]
  - Asthenia [Unknown]
  - Fungal infection [Not Recovered/Not Resolved]
  - Product dose omission issue [Unknown]
